FAERS Safety Report 5597888-8 (Version None)
Quarter: 2007Q4

REPORT INFORMATION
  Report Type: 
  Country: None (occurrence: None)
  Receive Date: 20071221
  Receipt Date: 20070130
  Transmission Date: 20080405
  Serious: Yes (Other)
  Sender: FDA-Public Use
  Company Number: US200701006375

PATIENT
  Sex: Male

DRUGS (5)
  1. HUMALOG [Suspect]
     Indication: TYPE 1 DIABETES MELLITUS
     Dosage: UNK
     Dates: start: 19960101, end: 19990101
  2. HUMALOG [Suspect]
     Indication: TYPE 1 DIABETES MELLITUS
     Dosage: UNK
     Dates: start: 20070102, end: 20070116
  3. HUMULIN N [Suspect]
     Indication: TYPE 1 DIABETES MELLITUS
     Dosage: UNK
     Dates: start: 19700101, end: 19960101
  4. GLUCAGON (GLUCAGON UNKNOWN FORMULATION) [Suspect]
     Indication: BLOOD GLUCOSE INCREASED
     Dosage: UNK
  5. GLUCAGON (GLUCAGON UNKNOWN FORMULATION) [Suspect]
     Indication: CONVULSION
     Dosage: UNK

REACTIONS (4)
  - BLOOD GLUCOSE DECREASED [None]
  - BLOOD GLUCOSE INCREASED [None]
  - CONVULSION [None]
  - LIPOHYPERTROPHY [None]
